FAERS Safety Report 12474042 (Version 2)
Quarter: 2017Q2

REPORT INFORMATION
  Report Type: Spontaneous
  Country: US (occurrence: US)
  Receive Date: 20160616
  Receipt Date: 20170608
  Transmission Date: 20170830
  Serious: Yes (Hospitalization)
  Sender: FDA-Public Use
  Company Number: US-ASTRAZENECA-2016SE62090

PATIENT
  Age: 75 Year
  Sex: Male
  Weight: 129 kg

DRUGS (15)
  1. ATENOLOL. [Suspect]
     Active Substance: ATENOLOL
     Indication: HYPERTENSION
     Route: 048
     Dates: start: 2010, end: 20160420
  2. CRESTOR [Suspect]
     Active Substance: ROSUVASTATIN CALCIUM
     Indication: HYPERCHOLESTEROLAEMIA
     Route: 048
     Dates: start: 2010
  3. HYDROCHLOROTHIAZIDE. [Concomitant]
     Active Substance: HYDROCHLOROTHIAZIDE
     Indication: OEDEMA PERIPHERAL
     Dates: start: 2010
  4. GABAPENTIN. [Concomitant]
     Active Substance: GABAPENTIN
     Indication: PAIN
     Dates: start: 2010
  5. COMBIVENT [Concomitant]
     Active Substance: ALBUTEROL SULFATE\IPRATROPIUM BROMIDE
     Indication: CHRONIC OBSTRUCTIVE PULMONARY DISEASE
     Dates: start: 2010
  6. ASPIRIN. [Concomitant]
     Active Substance: ASPIRIN
     Indication: CARDIOVASCULAR EVENT PROPHYLAXIS
     Dates: start: 2010
  7. PLACEBO [Concomitant]
     Active Substance: UNSPECIFIED INGREDIENT
     Indication: CARDIOVASCULAR DISORDER
     Dosage: EVERY TWO WEEKS
     Route: 058
     Dates: start: 20160401, end: 20161104
  8. ATENOLOL. [Suspect]
     Active Substance: ATENOLOL
     Indication: HYPERTENSION
     Route: 048
     Dates: start: 20160420
  9. ANTIVERT [Concomitant]
     Active Substance: MECLIZINE HYDROCHLORIDE
     Indication: VERTIGO POSITIONAL
     Dosage: 25 MG EVERY 8 HOURS
  10. NITROGLYCERINE [Concomitant]
     Active Substance: NITROGLYCERIN
     Indication: ANGINA PECTORIS
     Dates: start: 1980
  11. LOSARTAN. [Concomitant]
     Active Substance: LOSARTAN
     Indication: HYPERTENSION
     Dates: start: 2012
  12. OMEPRAZOLE. [Suspect]
     Active Substance: OMEPRAZOLE
     Indication: GASTROOESOPHAGEAL REFLUX DISEASE
     Route: 048
     Dates: start: 2012
  13. PERCOCET [Suspect]
     Active Substance: ACETAMINOPHEN\OXYCODONE HYDROCHLORIDE
     Indication: PAIN
     Dosage: 10/325 MG, FOUR TIMES A DAY
     Route: 048
     Dates: start: 2015
  14. SPIRIVA [Concomitant]
     Active Substance: TIOTROPIUM BROMIDE MONOHYDRATE
     Indication: CHRONIC OBSTRUCTIVE PULMONARY DISEASE
     Dates: start: 2014
  15. FOLIC ACID. [Concomitant]
     Active Substance: FOLIC ACID
     Indication: ANAEMIA
     Dates: start: 2011

REACTIONS (21)
  - Dizziness [Recovered/Resolved]
  - Benign prostatic hyperplasia [Recovered/Resolved]
  - Gastritis [Recovered/Resolved]
  - Presyncope [Recovered/Resolved]
  - Skin hyperpigmentation [Recovered/Resolved]
  - Anaemia vitamin B12 deficiency [Recovered/Resolved]
  - Sinus bradycardia [Recovered/Resolved]
  - Cataract [Recovered/Resolved]
  - Hypercholesterolaemia [Recovered/Resolved]
  - Neck mass [Recovered/Resolved]
  - Atrioventricular block first degree [Recovered/Resolved]
  - Sciatica [Recovered/Resolved]
  - Bundle branch block right [Recovered/Resolved]
  - Oedema peripheral [Recovered/Resolved]
  - Diabetic vascular disorder [Recovered/Resolved]
  - Chest pain [Recovered/Resolved]
  - Vertigo positional [Recovered/Resolved]
  - Gastrooesophageal reflux disease [Recovered/Resolved]
  - Type 2 diabetes mellitus [Recovered/Resolved]
  - Diabetic neuropathy [Recovered/Resolved]
  - Dysphagia [Recovered/Resolved]

NARRATIVE: CASE EVENT DATE: 2010
